FAERS Safety Report 21371194 (Version 2)
Quarter: 2022Q3

REPORT INFORMATION
  Report Type: Spontaneous
  Country: US (occurrence: US)
  Receive Date: 20220923
  Receipt Date: 20220929
  Transmission Date: 20221027
  Serious: Yes (Life-Threatening, Hospitalization, Other)
  Sender: FDA-Public Use
  Company Number: US-LUPIN PHARMACEUTICALS INC.-2022-11351

PATIENT
  Age: 3 Month
  Sex: Male
  Weight: 6.24 kg

DRUGS (11)
  1. HYDROCODONE BITARTRATE AND ACETAMINOPHEN [Suspect]
     Active Substance: ACETAMINOPHEN\HYDROCODONE BITARTRATE
     Indication: Analgesic therapy
     Dosage: 0.2 MILLIGRAM/KILOGRAM
  2. MORPHINE [Suspect]
     Active Substance: MORPHINE
     Indication: Analgesic therapy
     Dosage: 0.9 MILLIGRAM IN DIVIDED DOSES
     Route: 042
  3. FENTANYL [Suspect]
     Active Substance: FENTANYL
     Indication: Analgesic therapy
     Dosage: UNK DOSE OF (0.5-1 MCG TO 25 MCG) INTRAOPERATIVELY; REQUIRED ESCALATING INFUSION RATES
     Route: 042
  4. FENTANYL [Suspect]
     Active Substance: FENTANYL
     Dosage: UNK REQUIRED REPEATED BOLUSES
     Route: 042
  5. DEXMEDETOMIDINE [Suspect]
     Active Substance: DEXMEDETOMIDINE
     Indication: Analgesic therapy
     Dosage: UNK DOSE OF (0.4 MCG TO 10 MCG) INTRAOPERATIVELY; REQUIRED ESCALATING INFUSION RATES
     Route: 042
  6. DEXMEDETOMIDINE [Suspect]
     Active Substance: DEXMEDETOMIDINE
     Dosage: UNK REQUIRED REPEATED BOLUSES
     Route: 042
  7. ROPIVACAINE [Concomitant]
     Active Substance: ROPIVACAINE
     Indication: Product used for unknown indication
     Dosage: UNK
     Route: 058
  8. SEVOFLURANE [Concomitant]
     Active Substance: SEVOFLURANE
     Indication: Induction and maintenance of anaesthesia
     Dosage: UNK RECEIVED DOSE (0.7 TO 2)
     Route: 065
  9. SUGAMMADEX [Concomitant]
     Active Substance: SUGAMMADEX
     Indication: Neuromuscular blockade reversal
     Dosage: UNK
     Route: 065
  10. ACETAMINOPHEN [Concomitant]
     Active Substance: ACETAMINOPHEN
     Indication: Analgesic therapy
     Dosage: UNK
     Route: 048
  11. BUPIVACAINE [Concomitant]
     Active Substance: BUPIVACAINE
     Indication: Product used for unknown indication
     Dosage: UNK
     Route: 058

REACTIONS (3)
  - Hyperaesthesia [Unknown]
  - Paradoxical drug reaction [Recovered/Resolved]
  - Drug ineffective [Unknown]
